FAERS Safety Report 6903498-X (Version None)
Quarter: 2010Q3

REPORT INFORMATION
  Report Type: 
  Country: None (occurrence: None)
  Receive Date: 20100803
  Receipt Date: 20081013
  Transmission Date: 20110219
  Serious: No
  Sender: FDA-Public Use
  Company Number: US-PFIZER INC-2008085880

PATIENT
  Sex: Female
  Weight: 68.181 kg

DRUGS (5)
  1. LYRICA [Suspect]
     Dates: start: 20081009
  2. CELEBREX [Concomitant]
  3. ASPIRINE [Concomitant]
  4. MULTIVITAMIN [Concomitant]
  5. LOVASTATIN [Concomitant]

REACTIONS (2)
  - BLOOD URINE PRESENT [None]
  - URINARY INCONTINENCE [None]
